FAERS Safety Report 5190607-9 (Version None)
Quarter: 2006Q4

REPORT INFORMATION
  Report Type: 
  Country: None (occurrence: None)
  Receive Date: 20061222
  Receipt Date: 20060918
  Transmission Date: 20070319
  Serious: No
  Sender: FDA-Public Use
  Company Number: US-BRISTOL-MYERS SQUIBB COMPANY-13512884

PATIENT
  Age: 37 Year
  Sex: Female
  Weight: 106 kg

DRUGS (13)
  1. ORENCIA [Suspect]
     Indication: RHEUMATOID ARTHRITIS
     Route: 042
     Dates: start: 20060519
  2. OXYCONTIN [Concomitant]
  3. LEXAPRO [Concomitant]
  4. HYDROCHLOROTHIAZIDE [Concomitant]
  5. TOPROL-XL [Concomitant]
  6. CELEBREX [Concomitant]
  7. DEPAKOTE [Concomitant]
  8. M.V.I. [Concomitant]
  9. AMITRIPTYLINE HCL [Concomitant]
  10. ELMIRON [Concomitant]
  11. TRAZODONE HCL [Concomitant]
  12. LEVOXYL [Concomitant]
  13. PLAQUENIL [Concomitant]

REACTIONS (1)
  - AMENORRHOEA [None]
